FAERS Safety Report 18903705 (Version 1)
Quarter: 2021Q1

REPORT INFORMATION
  Report Type: Spontaneous
  Country: US (occurrence: US)
  Receive Date: 20210216
  Receipt Date: 20210216
  Transmission Date: 20210420
  Serious: Yes (Other)
  Sender: FDA-Public Use
  Company Number: None

PATIENT
  Age: 73 Year
  Sex: Female
  Weight: 89.28 kg

DRUGS (12)
  1. METOPROLOL. [Concomitant]
     Active Substance: METOPROLOL
  2. HERCEPTIN [Concomitant]
     Active Substance: TRASTUZUMAB
  3. MULTIVITAMIN [Concomitant]
     Active Substance: VITAMINS
  4. VITAMIN B12 [Concomitant]
     Active Substance: CYANOCOBALAMIN
  5. IRON [Concomitant]
     Active Substance: IRON
  6. TUKYSA [Concomitant]
     Active Substance: TUCATINIB
  7. ONDANSETRON [Concomitant]
     Active Substance: ONDANSETRON
  8. MAGNESIUM [Concomitant]
     Active Substance: MAGNESIUM
  9. VALSARTAN AND HYDROCHLOROTHIAZIDE [Concomitant]
     Active Substance: HYDROCHLOROTHIAZIDE\VALSARTAN
  10. ZOLOFT [Concomitant]
     Active Substance: SERTRALINE HYDROCHLORIDE
  11. PROCHLORPERAZINE. [Concomitant]
     Active Substance: PROCHLORPERAZINE
  12. CAPECITABINE. [Suspect]
     Active Substance: CAPECITABINE
     Indication: BREAST CANCER
     Route: 048
     Dates: start: 20210209, end: 20210216

REACTIONS (1)
  - Dehydration [None]

NARRATIVE: CASE EVENT DATE: 20210216
